FAERS Safety Report 25221395 (Version 1)
Quarter: 2025Q2

REPORT INFORMATION
  Report Type: Spontaneous
  Country: US (occurrence: US)
  Receive Date: 20250421
  Receipt Date: 20250421
  Transmission Date: 20250716
  Serious: No
  Sender: PFIZER
  Company Number: US-PFIZER INC-PV202500045345

PATIENT
  Age: 19 Year
  Sex: Male

DRUGS (2)
  1. DEMEROL [Suspect]
     Active Substance: MEPERIDINE HYDROCHLORIDE
  2. OCREVUS [Concomitant]
     Active Substance: OCRELIZUMAB

REACTIONS (4)
  - Drug hypersensitivity [Unknown]
  - Respiration abnormal [Unknown]
  - Rash [Unknown]
  - Headache [Unknown]
